FAERS Safety Report 9243415 (Version 1)
Quarter: 2013Q2

REPORT INFORMATION
  Report Type: Report from Study
  Country: SE (occurrence: SE)
  Receive Date: 20130421
  Receipt Date: 20130421
  Transmission Date: 20140414
  Serious: Yes (Hospitalization)
  Sender: FDA-Public Use
  Company Number: SE-AMGEN-SWECT2013027338

PATIENT
  Age: 57 Year
  Sex: Female

DRUGS (4)
  1. ETANERCEPT [Suspect]
     Indication: RHEUMATOID ARTHRITIS
     Dosage: 50 MG, QWK
     Route: 058
     Dates: start: 20080521
  2. REUMACON [Concomitant]
     Dosage: UNK
     Route: 065
     Dates: start: 20080402
  3. METHOTREXATE [Concomitant]
     Dosage: UNK
     Route: 065
     Dates: start: 20080402
  4. NSAID^S [Concomitant]
     Dosage: UNK
     Route: 065
     Dates: start: 20080402

REACTIONS (1)
  - Keratitis interstitial [Unknown]
